FAERS Safety Report 10222337 (Version 1)
Quarter: 2014Q2

REPORT INFORMATION
  Report Type: Spontaneous
  Country: IT (occurrence: IT)
  Receive Date: 20140606
  Receipt Date: 20140606
  Transmission Date: 20141212
  Serious: Yes (Other)
  Sender: FDA-Public Use
  Company Number: IT-WATSON-2013-25404

PATIENT
  Age: 47 Year
  Sex: Male

DRUGS (1)
  1. LORAZEPAM [Suspect]
     Indication: SUICIDE ATTEMPT
     Dosage: 12.5 MG, TOTAL
     Route: 048
     Dates: start: 20130807, end: 20130807

REACTIONS (2)
  - Intentional overdose [Recovering/Resolving]
  - Vertigo [Recovering/Resolving]
